FAERS Safety Report 15075282 (Version 1)
Quarter: 2018Q2

REPORT INFORMATION
  Report Type: Spontaneous
  Country: US (occurrence: US)
  Receive Date: 20180627
  Receipt Date: 20180627
  Transmission Date: 20180711
  Serious: No
  Sender: FDA-Public Use
  Company Number: US-SAOL THERAPEUTICS-2018SAO00275

PATIENT
  Age: 40 Year
  Sex: Female

DRUGS (9)
  1. DILAUDID [Suspect]
     Active Substance: HYDROMORPHONE HYDROCHLORIDE
     Dosage: 0.896 MG, \DAY; TOTAL MAX DAILY DOSE
     Route: 037
     Dates: start: 20180122
  2. BUPIVACAINE. [Suspect]
     Active Substance: BUPIVACAINE
     Dosage: 17.931 MG, \DAY; TOTAL MAX DAILY DOSE
     Route: 037
     Dates: start: 20180122
  3. BUPIVACAINE. [Suspect]
     Active Substance: BUPIVACAINE
     Dosage: 14.023 MG, \DAY
     Route: 037
     Dates: start: 20180122
  4. BACLOFEN. [Suspect]
     Active Substance: BACLOFEN
     Route: 037
  5. DILAUDID [Suspect]
     Active Substance: HYDROMORPHONE HYDROCHLORIDE
     Route: 037
  6. BACLOFEN. [Suspect]
     Active Substance: BACLOFEN
     Dosage: 89.66 ?G, \DAY; TOTAL MAX DAILY DOSE
     Route: 037
     Dates: start: 20180122
  7. BUPIVACAINE. [Suspect]
     Active Substance: BUPIVACAINE
     Route: 037
  8. BACLOFEN. [Suspect]
     Active Substance: BACLOFEN
     Dosage: 70.12 ?G, \DAY
     Route: 037
     Dates: start: 20180122
  9. DILAUDID [Suspect]
     Active Substance: HYDROMORPHONE HYDROCHLORIDE
     Dosage: 0.7012 MG, \DAY
     Route: 037
     Dates: start: 20180122

REACTIONS (2)
  - Device malfunction [Recovered/Resolved]
  - Hypoaesthesia [Unknown]

NARRATIVE: CASE EVENT DATE: 20170815
